FAERS Safety Report 12536106 (Version 4)
Quarter: 2017Q2

REPORT INFORMATION
  Report Type: Report from Study
  Country: CA (occurrence: CA)
  Receive Date: 20160707
  Receipt Date: 20170504
  Transmission Date: 20170830
  Serious: Yes (Death, Other)
  Sender: FDA-Public Use
  Company Number: CA-ROCHE-1642244

PATIENT
  Age: 73 Year
  Sex: Male

DRUGS (9)
  1. ESBRIET [Suspect]
     Active Substance: PIRFENIDONE
     Route: 048
     Dates: start: 20150707
  2. ELTROXIN [Concomitant]
     Active Substance: LEVOTHYROXINE
  3. METOPROLOL. [Concomitant]
     Active Substance: METOPROLOL
  4. ASPIRIN. [Concomitant]
     Active Substance: ASPIRIN
  5. ATORVASTATIN [Concomitant]
     Active Substance: ATORVASTATIN
  6. BUPROPION. [Concomitant]
     Active Substance: BUPROPION
  7. ESBRIET [Suspect]
     Active Substance: PIRFENIDONE
     Route: 048
     Dates: start: 20150714, end: 201704
  8. WARFARIN [Concomitant]
     Active Substance: WARFARIN
  9. ESBRIET [Suspect]
     Active Substance: PIRFENIDONE
     Indication: IDIOPATHIC PULMONARY FIBROSIS
     Route: 048
     Dates: start: 20150630

REACTIONS (8)
  - Pruritus [Not Recovered/Not Resolved]
  - Cough [Recovering/Resolving]
  - Dyspnoea [Recovering/Resolving]
  - Balance disorder [Not Recovered/Not Resolved]
  - Pulmonary function test decreased [Unknown]
  - Pulmonary function test abnormal [Unknown]
  - Death [Fatal]
  - Insomnia [Recovering/Resolving]

NARRATIVE: CASE EVENT DATE: 20151127
